FAERS Safety Report 7423624-6 (Version None)
Quarter: 2011Q2

REPORT INFORMATION
  Report Type: 
  Country: None (occurrence: None)
  Receive Date: 20110419
  Receipt Date: 20110406
  Transmission Date: 20111010
  Serious: Yes (Other)
  Sender: FDA-Public Use
  Company Number: CA-JNJFOC-20110403278

PATIENT
  Sex: Male
  Weight: 74.1 kg

DRUGS (7)
  1. SULFASALAZINE [Concomitant]
     Route: 065
  2. NAPROXEN [Concomitant]
     Route: 065
  3. REMICADE [Suspect]
     Indication: ANKYLOSING SPONDYLITIS
     Route: 042
  4. BENZTROPINE [Concomitant]
     Route: 065
  5. OMEPRAZOLE [Concomitant]
     Route: 065
  6. CELEBREX [Concomitant]
     Route: 065
  7. ANTI-INFLAMMATORY AGENT NOS [Concomitant]
     Route: 065

REACTIONS (2)
  - NEPHROLITHIASIS [None]
  - TOOTH ABSCESS [None]
